FAERS Safety Report 7550893-4 (Version None)
Quarter: 2011Q2

REPORT INFORMATION
  Report Type: 
  Country: None (occurrence: None)
  Receive Date: 20110609
  Receipt Date: 20110526
  Transmission Date: 20111010
  Serious: Yes (Hospitalization)
  Sender: FDA-Public Use
  Company Number: DEP10_00125_2011

PATIENT
  Age: 57 Year
  Sex: Female

DRUGS (11)
  1. XANAX [Concomitant]
  2. VOLTAREN [Concomitant]
  3. GABAPENTIN [Suspect]
     Indication: HOT FLUSH
     Dosage: (1800 MG DAILY OR PLACEBO ORAL)
     Route: 048
     Dates: start: 20101108, end: 20110423
  4. BENADRYL [Concomitant]
  5. IMITREX [Concomitant]
  6. NORCO [Concomitant]
  7. CLINDAMYCIN [Concomitant]
  8. CALCIUM WITH VITAMIN D [Concomitant]
  9. EXCEDRIN /00509701/ [Concomitant]
  10. MAGNESIUM W/POTASSIUM [Concomitant]
  11. AMOXICILLIN [Concomitant]

REACTIONS (14)
  - HYPERHIDROSIS [None]
  - GASTROENTERITIS [None]
  - DIARRHOEA HAEMORRHAGIC [None]
  - VOMITING [None]
  - PRESYNCOPE [None]
  - GASTROINTESTINAL SOUNDS ABNORMAL [None]
  - HYPOTHERMIA [None]
  - COLITIS [None]
  - VENTRICULAR EXTRASYSTOLES [None]
  - ANAEMIA [None]
  - MENORRHAGIA [None]
  - DIZZINESS [None]
  - GASTROINTESTINAL HAEMORRHAGE [None]
  - DRUG SCREEN POSITIVE [None]
